FAERS Safety Report 20032882 (Version 1)
Quarter: 2021Q4

REPORT INFORMATION
  Report Type: Spontaneous
  Country: FR (occurrence: None)
  Receive Date: 20211104
  Receipt Date: 20211104
  Transmission Date: 20220303
  Serious: Yes (Other)
  Sender: FDA-Public Use
  Company Number: FR-Orion Corporation ORION PHARMA-TREX2021-0094

PATIENT
  Age: 52 Year
  Sex: Male

DRUGS (10)
  1. METHOTREXATE [Suspect]
     Active Substance: METHOTREXATE
     Indication: Psoriasis
     Route: 048
     Dates: start: 20161223, end: 20170630
  2. METHOTREXATE [Suspect]
     Active Substance: METHOTREXATE
     Route: 058
     Dates: start: 20180630, end: 20181015
  3. ACITRETIN [Concomitant]
     Active Substance: ACITRETIN
     Indication: Psoriasis
     Route: 048
     Dates: start: 20161020, end: 20161125
  4. ACITRETIN [Concomitant]
     Active Substance: ACITRETIN
     Route: 048
     Dates: start: 20161125, end: 20161223
  5. CICLETANINE HYDROCHLORIDE [Concomitant]
     Active Substance: CICLETANINE HYDROCHLORIDE
     Route: 048
     Dates: start: 20140101
  6. ATACAND [Concomitant]
     Active Substance: CANDESARTAN CILEXETIL
     Route: 048
     Dates: start: 20141001
  7. TALTZ [Concomitant]
     Active Substance: IXEKIZUMAB
     Indication: Psoriasis
     Dosage: STRENGTH: 80 MG
     Route: 058
     Dates: start: 20171122, end: 20180227
  8. TALTZ [Concomitant]
     Active Substance: IXEKIZUMAB
     Dosage: STRENGTH: 80 MG
     Route: 058
     Dates: start: 20180227, end: 20210219
  9. TALTZ [Concomitant]
     Active Substance: IXEKIZUMAB
     Dosage: STRENGTH: 80 MG
     Route: 058
     Dates: start: 20210219, end: 20210924
  10. DILTIAZEM HYDROCHLORIDE [Concomitant]
     Active Substance: DILTIAZEM HYDROCHLORIDE
     Route: 048
     Dates: start: 20141001

REACTIONS (1)
  - Tonsil cancer [Not Recovered/Not Resolved]

NARRATIVE: CASE EVENT DATE: 20210901
